FAERS Safety Report 7491388-6 (Version None)
Quarter: 2011Q2

REPORT INFORMATION
  Report Type: 
  Country: None (occurrence: None)
  Receive Date: 20110519
  Receipt Date: 20110509
  Transmission Date: 20111010
  Serious: Yes (Other)
  Sender: FDA-Public Use
  Company Number: PHHY2011US39349

PATIENT
  Sex: Male

DRUGS (2)
  1. GLEEVEC [Suspect]
     Indication: GASTRIC CANCER
     Dosage: 1 DF, QD
     Route: 048
     Dates: start: 20091116
  2. GLEEVEC [Suspect]
     Dosage: 2 DF, QD
     Route: 048

REACTIONS (5)
  - RENAL DISORDER [None]
  - JOINT SWELLING [None]
  - LACRIMATION INCREASED [None]
  - OEDEMA PERIPHERAL [None]
  - WEIGHT INCREASED [None]
